FAERS Safety Report 24132496 (Version 3)
Quarter: 2024Q3

REPORT INFORMATION
  Report Type: Spontaneous
  Country: US (occurrence: US)
  Receive Date: 20240724
  Receipt Date: 20240905
  Transmission Date: 20241016
  Serious: No
  Sender: PFIZER
  Company Number: US-PFIZER INC-PV202400096169

PATIENT
  Age: 29 Year
  Sex: Male
  Weight: 102 kg

DRUGS (5)
  1. PRISTIQ EXTENDED-RELEASE [Suspect]
     Active Substance: DESVENLAFAXINE SUCCINATE
     Indication: Depression
     Dosage: 50 MG, DAILY (HAD BEEN TAKING 50 MG, DAILY FOR 2 YEARS PRIOR)
     Route: 048
     Dates: start: 2022
  2. PRISTIQ EXTENDED-RELEASE [Suspect]
     Active Substance: DESVENLAFAXINE SUCCINATE
     Indication: Anxiety
     Dosage: 25 MG
     Route: 048
  3. PRISTIQ EXTENDED-RELEASE [Suspect]
     Active Substance: DESVENLAFAXINE SUCCINATE
     Indication: Attention deficit hyperactivity disorder
     Dosage: 25 MG
     Route: 048
     Dates: start: 20240622, end: 20240719
  4. INTUNIV [Concomitant]
     Active Substance: GUANFACINE HYDROCHLORIDE
     Indication: Attention deficit hyperactivity disorder
     Dosage: 2 MG, 1X/DAY
  5. ZYRTEC [Concomitant]
     Active Substance: CETIRIZINE HYDROCHLORIDE
     Indication: Hypersensitivity
     Dosage: 1X/DAY (STANDARD DOSE)

REACTIONS (16)
  - Thinking abnormal [Recovered/Resolved]
  - Electric shock sensation [Not Recovered/Not Resolved]
  - Pain [Recovered/Resolved]
  - Inappropriate affect [Recovered/Resolved]
  - Crying [Recovered/Resolved]
  - Anger [Recovering/Resolving]
  - Dissociation [Recovered/Resolved]
  - Exploding head syndrome [Not Recovered/Not Resolved]
  - Diarrhoea [Recovered/Resolved]
  - Withdrawal syndrome [Unknown]
  - Insomnia [Not Recovered/Not Resolved]
  - Chills [Recovered/Resolved]
  - Nightmare [Recovered/Resolved]
  - Nausea [Recovered/Resolved]
  - Dizziness [Recovered/Resolved]
  - Intentional dose omission [Unknown]

NARRATIVE: CASE EVENT DATE: 20240719
